FAERS Safety Report 9215101 (Version 2)
Quarter: 2013Q4

REPORT INFORMATION
  Report Type: Spontaneous
  Country: CA (occurrence: CA)
  Receive Date: 20130405
  Receipt Date: 20131211
  Transmission Date: 20140711
  Serious: Yes (Other)
  Sender: FDA-Public Use
  Company Number: CA-AMGEN-CANSP2013021762

PATIENT
  Age: 54 Year
  Sex: Female

DRUGS (16)
  1. ENBREL [Suspect]
     Indication: ANKYLOSING SPONDYLITIS
     Dosage: 50 MG, UNK
     Route: 065
     Dates: start: 20110628
  2. INDOCID                            /00003801/ [Concomitant]
     Dosage: UNK
  3. HYDROMORPH CONTIN [Concomitant]
     Dosage: UNK
  4. PAXIL                              /00500401/ [Concomitant]
     Dosage: UNK
  5. RESTORIL                           /00393701/ [Concomitant]
     Dosage: UNK
  6. LOSEC                              /00661201/ [Concomitant]
     Dosage: UNK
  7. LASIX                              /00032601/ [Concomitant]
     Dosage: UNK
  8. BABY ASPIRIN [Concomitant]
     Dosage: UNK
  9. BETAHISTINE [Concomitant]
     Dosage: UNK
  10. INSULIN [Concomitant]
     Dosage: UNK
  11. ASAPHEN [Concomitant]
     Dosage: UNK
  12. HYDROMORPHONE [Concomitant]
     Dosage: UNK
  13. CRESTOR [Concomitant]
     Dosage: UNK
  14. ALLOPURINOL [Concomitant]
     Dosage: UNK
  15. INDOCIN                            /00003801/ [Concomitant]
     Dosage: UNK
  16. ZESTRIL [Concomitant]
     Dosage: UNK

REACTIONS (4)
  - Meniere^s disease [Recovering/Resolving]
  - Cough [Not Recovered/Not Resolved]
  - Bronchitis [Recovered/Resolved]
  - Sinusitis [Not Recovered/Not Resolved]
